FAERS Safety Report 11734494 (Version 1)
Quarter: 2015Q4

REPORT INFORMATION
  Report Type: Spontaneous
  Country: US (occurrence: None)
  Receive Date: 20151112
  Receipt Date: 20151112
  Transmission Date: 20160304
  Serious: Yes (Life-Threatening, Hospitalization)
  Sender: FDA-Public Use
  Company Number: None

PATIENT
  Age: 79 Year
  Sex: Female
  Weight: 64.1 kg

DRUGS (1)
  1. IMBRUVICA [Suspect]
     Active Substance: IBRUTINIB
     Indication: NON-HODGKIN^S LYMPHOMA
     Dosage: 1 PILL
     Route: 048
     Dates: start: 20151002, end: 20151109

REACTIONS (9)
  - Cellulitis [None]
  - Skin fissures [None]
  - Pruritus [None]
  - Skin exfoliation [None]
  - Sepsis [None]
  - Stevens-Johnson syndrome [None]
  - Hypotension [None]
  - Generalised erythema [None]
  - Tachycardia [None]

NARRATIVE: CASE EVENT DATE: 20151109
